FAERS Safety Report 5293441-4 (Version None)
Quarter: 2007Q2

REPORT INFORMATION
  Report Type: 
  Country: None (occurrence: None)
  Receive Date: 20070411
  Receipt Date: 20070403
  Transmission Date: 20071010
  Serious: Yes (Death, Hospitalization)
  Sender: FDA-Public Use
  Company Number: PHHO2007US06150

PATIENT
  Sex: Female
  Weight: 53 kg

DRUGS (7)
  1. IMATINIB MESYLATE [Suspect]
     Indication: ACUTE LYMPHOCYTIC LEUKAEMIA
     Dosage: 400 MG, BID
     Route: 048
     Dates: start: 20061219, end: 20070109
  2. PRILOSEC [Concomitant]
  3. ATIVAN [Concomitant]
  4. KYTRIL [Concomitant]
  5. OXYCODONE HCL [Concomitant]
  6. DAUNORUBICIN HCL [Suspect]
  7. MITOXANTRONE [Suspect]

REACTIONS (24)
  - ABDOMINAL PAIN LOWER [None]
  - ABDOMINAL TENDERNESS [None]
  - ARRHYTHMIA [None]
  - ATELECTASIS [None]
  - CARDIOMEGALY [None]
  - CARDIOMYOPATHY [None]
  - CHILLS [None]
  - COUGH [None]
  - DYSPNOEA [None]
  - EJECTION FRACTION DECREASED [None]
  - FATIGUE [None]
  - HYPOTENSION [None]
  - INSOMNIA [None]
  - MUSCLE TWITCHING [None]
  - NAUSEA [None]
  - PHARYNGOLARYNGEAL PAIN [None]
  - PLEURAL EFFUSION [None]
  - PNEUMONIA [None]
  - SOMATOFORM DISORDER [None]
  - TACHYCARDIA [None]
  - VENTRICULAR DYSFUNCTION [None]
  - VENTRICULAR FAILURE [None]
  - VENTRICULAR FIBRILLATION [None]
  - VOMITING [None]
